FAERS Safety Report 4583267-9 (Version None)
Quarter: 2005Q1

REPORT INFORMATION
  Report Type: 
  Country: None (occurrence: None)
  Receive Date: 20050125
  Receipt Date: 20041118
  Transmission Date: 20050727
  Serious: No
  Sender: FDA-Public Use
  Company Number: USA041184066

PATIENT
  Age: 62 Year
  Sex: Female
  Weight: 77 kg

DRUGS (1)
  1. FORTEO [Suspect]
     Indication: BONE DISORDER
     Dosage: 20 UG/1 DAY
     Dates: start: 20041028

REACTIONS (5)
  - ASTHENIA [None]
  - FEELING ABNORMAL [None]
  - ILL-DEFINED DISORDER [None]
  - NAUSEA [None]
  - PAIN [None]
